FAERS Safety Report 9819637 (Version 5)
Quarter: 2014Q1

REPORT INFORMATION
  Report Type: Report from Study
  Country: FR (occurrence: FR)
  Receive Date: 20140115
  Receipt Date: 20140318
  Transmission Date: 20141002
  Serious: Yes (Other)
  Sender: FDA-Public Use
  Company Number: FR-JNJFOC-20140103090

PATIENT
  Age: 76 Year
  Sex: Male

DRUGS (22)
  1. ABIRATERONE ACETATE [Suspect]
     Route: 048
  2. ABIRATERONE ACETATE [Suspect]
     Indication: PROSTATE CANCER METASTATIC
     Route: 048
     Dates: start: 20120712, end: 20140203
  3. PREDNISOLONE [Suspect]
     Indication: PROSTATE CANCER METASTATIC
     Route: 048
     Dates: start: 20100201, end: 20110614
  4. PREDNISOLONE [Suspect]
     Indication: PROSTATE CANCER METASTATIC
     Route: 048
     Dates: start: 20110910, end: 20140203
  5. PREDNISOLONE [Suspect]
     Indication: PROSTATE CANCER METASTATIC
     Route: 048
     Dates: start: 20110618, end: 20110906
  6. DECAPEPTYL [Concomitant]
     Indication: ANTIANDROGEN THERAPY
     Dosage: UNSPECIFIED DOSE, MG
     Route: 058
     Dates: start: 20100201
  7. DECAPEPTYL [Concomitant]
     Indication: ANTIANDROGEN THERAPY
     Route: 058
     Dates: start: 200611
  8. DECAPEPTYL [Concomitant]
     Indication: HORMONE THERAPY
     Dosage: UNSPECIFIED DOSE, MG
     Route: 058
     Dates: start: 20100201
  9. DECAPEPTYL [Concomitant]
     Indication: HORMONE THERAPY
     Route: 058
     Dates: start: 200611
  10. UVEDOSE [Concomitant]
     Indication: VITAMIN SUPPLEMENTATION
     Route: 030
     Dates: start: 20100305
  11. APROVEL [Concomitant]
     Indication: HYPERTENSION
     Route: 048
     Dates: start: 20100424
  12. OMEXEL [Concomitant]
     Indication: PROPHYLAXIS
     Route: 048
     Dates: start: 20100427
  13. BECILAN [Concomitant]
     Indication: CARPAL TUNNEL SYNDROME
     Route: 048
     Dates: start: 20121217, end: 201401
  14. BENERVA [Concomitant]
     Indication: CARPAL TUNNEL SYNDROME
     Route: 048
     Dates: start: 20121217, end: 201401
  15. LEXOMIL [Concomitant]
     Indication: INSOMNIA
     Route: 048
     Dates: start: 201102
  16. NEURONTIN [Concomitant]
     Indication: CARPAL TUNNEL SYNDROME
     Route: 048
     Dates: start: 20130604, end: 20140203
  17. CALCIUM 500 [Concomitant]
     Indication: OSTEOPOROSIS
     Route: 048
     Dates: start: 201306, end: 20140203
  18. MELAXOSE [Concomitant]
     Indication: CONSTIPATION
     Route: 048
     Dates: start: 201311, end: 201311
  19. TRIMEBUTINE [Concomitant]
     Indication: CONSTIPATION
     Route: 048
     Dates: start: 201311, end: 201311
  20. ERCEFURYL [Concomitant]
     Indication: DIARRHOEA
     Route: 048
     Dates: start: 20140125, end: 20140131
  21. PARAFFIN [Concomitant]
     Indication: CONSTIPATION
     Route: 048
     Dates: start: 201311, end: 201311
  22. SOLU MEDROL [Concomitant]
     Indication: PARAESTHESIA
     Route: 048
     Dates: start: 20140220

REACTIONS (1)
  - Pancreatic carcinoma [Not Recovered/Not Resolved]
